FAERS Safety Report 5404950-9 (Version None)
Quarter: 2007Q3

REPORT INFORMATION
  Report Type: 
  Country: None (occurrence: None)
  Receive Date: 20070803
  Receipt Date: 20070726
  Transmission Date: 20080115
  Serious: Yes (Hospitalization, Other)
  Sender: FDA-Public Use
  Company Number: JP-AMGEN-US227675

PATIENT
  Sex: Male

DRUGS (2)
  1. KINERET [Suspect]
     Indication: PRE-EXISTING DISEASE
     Route: 058
     Dates: start: 20060810
  2. IBUPROFEN [Concomitant]
     Route: 065

REACTIONS (5)
  - ANTIBODY TEST POSITIVE [None]
  - CHRONIC INFANTILE NEUROLOGICAL CUTANEOUS AND ARTICULAR SYNDROME [None]
  - HEADACHE [None]
  - INFECTION [None]
  - MALAISE [None]
